FAERS Safety Report 5645235-5 (Version None)
Quarter: 2008Q1

REPORT INFORMATION
  Report Type: 
  Country: None (occurrence: None)
  Receive Date: 20080229
  Receipt Date: 20071228
  Transmission Date: 20080703
  Serious: Yes (Congenital Anomaly)
  Sender: FDA-Public Use
  Company Number: FR-JNJFOC-20080202659

PATIENT
  Sex: Female

DRUGS (9)
  1. ULTRACET [Suspect]
     Indication: DRUG USE FOR UNKNOWN INDICATION
     Route: 064
     Dates: start: 20051216, end: 20060115
  2. ACETYLCYSTEINE [Suspect]
     Indication: DRUG USE FOR UNKNOWN INDICATION
     Route: 064
  3. HEXAPNEUMINE [Suspect]
     Indication: DRUG USE FOR UNKNOWN INDICATION
     Route: 064
  4. MODANE [Suspect]
     Indication: DRUG USE FOR UNKNOWN INDICATION
     Route: 064
  5. NULYTELY [Suspect]
     Indication: DRUG USE FOR UNKNOWN INDICATION
     Route: 064
  6. MOXIFLOXACIN HCL [Suspect]
     Indication: DRUG USE FOR UNKNOWN INDICATION
     Route: 064
  7. DETURGYLONE [Suspect]
     Indication: DRUG USE FOR UNKNOWN INDICATION
     Route: 064
  8. ADALAT [Concomitant]
     Route: 065
  9. CELESTONE [Concomitant]
     Route: 065

REACTIONS (3)
  - CARDIOMYOPATHY NEONATAL [None]
  - CONGENITAL MITOCHONDRIAL CYTOPATHY [None]
  - DRUG EXPOSURE DURING PREGNANCY [None]
